FAERS Safety Report 6869156-5 (Version None)
Quarter: 2010Q3

REPORT INFORMATION
  Report Type: 
  Country: None (occurrence: None)
  Receive Date: 20100722
  Receipt Date: 20080701
  Transmission Date: 20110219
  Serious: Yes (Other)
  Sender: FDA-Public Use
  Company Number: US-PFIZER INC-2008056175

PATIENT
  Sex: Male
  Weight: 73.9 kg

DRUGS (6)
  1. CHANTIX [Suspect]
     Dates: start: 20071001
  2. TRICOR [Concomitant]
  3. PROTONIX [Concomitant]
  4. ALLEGRA [Concomitant]
  5. SIMVASTATIN [Concomitant]
  6. BISOPROLOL [Concomitant]

REACTIONS (7)
  - ANXIETY [None]
  - DISTURBANCE IN ATTENTION [None]
  - IMPULSIVE BEHAVIOUR [None]
  - LIBIDO DECREASED [None]
  - NIGHTMARE [None]
  - SUICIDAL IDEATION [None]
  - UNEVALUABLE EVENT [None]
